FAERS Safety Report 13106164 (Version 2)
Quarter: 2017Q1

REPORT INFORMATION
  Report Type: Spontaneous
  Country: US (occurrence: US)
  Receive Date: 20170111
  Receipt Date: 20170124
  Transmission Date: 20170428
  Serious: No
  Sender: FDA-Public Use
  Company Number: US-PFIZER INC-2016521644

PATIENT
  Age: 73 Year
  Sex: Female
  Weight: 85.73 kg

DRUGS (2)
  1. FASLODEX [Concomitant]
     Active Substance: FULVESTRANT
     Dosage: UNK
  2. IBRANCE [Suspect]
     Active Substance: PALBOCICLIB
     Indication: BREAST CANCER FEMALE
     Dosage: 125 MG, CYCLIC (21 DAYS, THEN 7 DAYS OFF, AND THEN REPEAT THE CYCLE)
     Route: 048
     Dates: start: 20160915

REACTIONS (2)
  - Malaise [Unknown]
  - Vomiting [Unknown]
